FAERS Safety Report 24178982 (Version 1)
Quarter: 2024Q3

REPORT INFORMATION
  Report Type: Spontaneous
  Country: IT (occurrence: IT)
  Receive Date: 20240806
  Receipt Date: 20240806
  Transmission Date: 20241016
  Serious: Yes (Life-Threatening, Hospitalization, Other)
  Sender: EPIC PHARM
  Company Number: IT-EPICPHARMA-IT-2024EPCLIT00907

PATIENT
  Age: 15 Year
  Sex: Female
  Weight: 48 kg

DRUGS (7)
  1. FUROSEMIDE [Suspect]
     Active Substance: FUROSEMIDE
     Indication: Product used for unknown indication
     Route: 048
  2. PREGABALIN [Suspect]
     Active Substance: PREGABALIN
     Indication: Product used for unknown indication
     Route: 048
  3. QUETIAPINE [Suspect]
     Active Substance: QUETIAPINE
     Indication: Product used for unknown indication
     Route: 048
  4. ASPIRIN [Suspect]
     Active Substance: ASPIRIN
     Indication: Product used for unknown indication
     Route: 048
  5. BISOPROLOL [Suspect]
     Active Substance: BISOPROLOL\BISOPROLOL FUMARATE
     Indication: Product used for unknown indication
     Route: 048
  6. FLUOXETINE [Suspect]
     Active Substance: FLUOXETINE HYDROCHLORIDE
     Indication: Product used for unknown indication
     Route: 048
  7. ALPRAZOLAM [Suspect]
     Active Substance: ALPRAZOLAM
     Indication: Product used for unknown indication
     Route: 048

REACTIONS (8)
  - Unresponsive to stimuli [Recovering/Resolving]
  - Electrocardiogram QT prolonged [Recovering/Resolving]
  - Mydriasis [Recovering/Resolving]
  - Bradypnoea [Recovering/Resolving]
  - Sinus bradycardia [Recovering/Resolving]
  - Bezoar [Recovering/Resolving]
  - Intentional overdose [Unknown]
  - Intentional product misuse [Unknown]
